FAERS Safety Report 5722100-6 (Version None)
Quarter: 2008Q2

REPORT INFORMATION
  Report Type: 
  Country: None (occurrence: None)
  Receive Date: 20080429
  Receipt Date: 20070508
  Transmission Date: 20081010
  Serious: No
  Sender: FDA-Public Use
  Company Number: US-ASTRAZENECA-2007UW11066

PATIENT
  Age: 76 Year
  Sex: Female
  Weight: 58.1 kg

DRUGS (7)
  1. NEXIUM [Suspect]
     Indication: GASTROOESOPHAGEAL REFLUX DISEASE
     Route: 048
     Dates: start: 20040101
  2. NEXIUM [Suspect]
     Indication: HIATUS HERNIA
     Route: 048
     Dates: start: 20040101
  3. LIPITOR [Concomitant]
  4. LOTREL [Concomitant]
  5. ATENOLOL [Concomitant]
     Route: 048
  6. TRIAM [Concomitant]
  7. HYDROCHLOROTHIAZIDE [Concomitant]

REACTIONS (3)
  - CHOKING [None]
  - OSTEOPOROSIS [None]
  - REGURGITATION [None]
